FAERS Safety Report 13861427 (Version 2)
Quarter: 2017Q3

REPORT INFORMATION
  Report Type: Report from Study
  Country: MX (occurrence: MX)
  Receive Date: 20170811
  Receipt Date: 20170828
  Transmission Date: 20171127
  Serious: Yes (Other)
  Sender: FDA-Public Use
  Company Number: MX-UCBSA-2017031316

PATIENT
  Age: 72 Year
  Sex: Female
  Weight: 62 kg

DRUGS (9)
  1. LEVETIRACETAM. [Suspect]
     Active Substance: LEVETIRACETAM
     Dosage: 1G AT MORNING, 500MG AT NOON AN 1GR AT NIGHT (CURRENT DOSE)
     Route: 048
  2. ALEVIAN DUO [Concomitant]
     Indication: COLITIS
     Dosage: CAPSULES (1 CAPSULE/24 HRS)
  3. LEVETIRACETAM. [Suspect]
     Active Substance: LEVETIRACETAM
     Indication: GENERALISED TONIC-CLONIC SEIZURE
     Dosage: KEPPRA 1G AND KEPPRA 500MG UNDER PRESCRIPTION
     Route: 048
     Dates: start: 20100716
  4. LEVOTHYROXINE. [Concomitant]
     Active Substance: LEVOTHYROXINE
     Indication: HYPOTHYROIDISM
     Dosage: TABLETS OF 75MG (1 TABLET/24 HRS, SINCE 20 OR 30 YEARS AGO
  5. NEXUS [Concomitant]
     Indication: BLOOD PRESSURE INCREASED
  6. VITAMIN D [Concomitant]
     Active Substance: CHOLECALCIFEROL
     Indication: BLOOD CALCIUM
  7. LEVETIRACETAM. [Suspect]
     Active Substance: LEVETIRACETAM
     Indication: EPILEPSY
     Dosage: 1 AND ? 500MG TABLETS IN THE MORNING, 1 TABLET AT NOON AND 1 AND ? AT NIGHT
     Route: 048
  8. MYSOLINE [Concomitant]
     Active Substance: PRIMIDONE
     Indication: GENERALISED TONIC-CLONIC SEIZURE
     Dosage: TABLETS OF 250MG (2 TABLETS/12 HRS
  9. ATACAND [Concomitant]
     Active Substance: CANDESARTAN CILEXETIL
     Indication: BLOOD PRESSURE INCREASED

REACTIONS (2)
  - Off label use [Unknown]
  - Osteoarthritis [Recovering/Resolving]

NARRATIVE: CASE EVENT DATE: 201705
